FAERS Safety Report 9509554 (Version 1)
Quarter: 2013Q3

REPORT INFORMATION
  Report Type: Spontaneous
  Country: US (occurrence: US)
  Receive Date: 20130909
  Receipt Date: 20130909
  Transmission Date: 20140515
  Serious: No
  Sender: FDA-Public Use
  Company Number: US-BRISTOL-MYERS SQUIBB COMPANY-17235276

PATIENT
  Age: 40 Year
  Sex: Female

DRUGS (4)
  1. ABILIFY [Suspect]
     Indication: MAJOR DEPRESSION
  2. BUSPAR [Suspect]
     Indication: MAJOR DEPRESSION
  3. PROZAC [Suspect]
     Indication: MAJOR DEPRESSION
  4. CANNABIS [Suspect]
     Indication: MAJOR DEPRESSION

REACTIONS (1)
  - Galactorrhoea [Unknown]
